FAERS Safety Report 10217163 (Version 1)
Quarter: 2014Q2

REPORT INFORMATION
  Report Type: Spontaneous
  Country: US (occurrence: US)
  Receive Date: 20140604
  Receipt Date: 20140604
  Transmission Date: 20141212
  Serious: Yes (Hospitalization, Other)
  Sender: FDA-Public Use
  Company Number: PHHY2014US064430

PATIENT
  Age: 2 Week
  Sex: Female

DRUGS (1)
  1. METHYLDOPA [Suspect]
     Route: 064

REACTIONS (17)
  - Hypertensive crisis [Recovered/Resolved]
  - Small for dates baby [Unknown]
  - Low birth weight baby [Unknown]
  - Hyperbilirubinaemia [Recovered/Resolved]
  - Hypoglycaemia [Recovered/Resolved]
  - Cardiomegaly [Recovered/Resolved]
  - Neonatal hypoxia [Recovered/Resolved]
  - Dyspnoea [Recovered/Resolved]
  - Respiratory distress [Unknown]
  - Feeding disorder neonatal [Recovered/Resolved]
  - Atrial septal defect [Recovered/Resolved]
  - Ventricular septal defect [Recovered/Resolved]
  - Tricuspid valve incompetence [Recovered/Resolved]
  - Tachycardia [Recovered/Resolved]
  - Transaminases increased [Recovered/Resolved]
  - Drug withdrawal syndrome neonatal [Unknown]
  - Foetal exposure during pregnancy [Unknown]
